FAERS Safety Report 23645143 (Version 1)
Quarter: 2024Q1

REPORT INFORMATION
  Report Type: Spontaneous
  Country: SA (occurrence: SA)
  Receive Date: 20240318
  Receipt Date: 20240318
  Transmission Date: 20240410
  Serious: Yes (Other)
  Sender: FDA-Public Use
  Company Number: SA-ORGANON-O2403SAU001444

PATIENT
  Sex: Female

DRUGS (1)
  1. ETONOGESTREL [Suspect]
     Active Substance: ETONOGESTREL
     Dosage: 1 IMPLANT
     Route: 059

REACTIONS (3)
  - Heavy menstrual bleeding [Not Recovered/Not Resolved]
  - Haemoglobin decreased [Unknown]
  - Menstrual clots [Not Recovered/Not Resolved]

NARRATIVE: CASE EVENT DATE: 20230801
